FAERS Safety Report 16984140 (Version 1)
Quarter: 2019Q4

REPORT INFORMATION
  Report Type: Report from Study
  Country: US (occurrence: US)
  Receive Date: 20191101
  Receipt Date: 20191101
  Transmission Date: 20200122
  Serious: Yes (Other)
  Sender: FDA-Public Use
  Company Number: US-JNJFOC-20191045320

PATIENT
  Age: 77 Year
  Sex: Female

DRUGS (1)
  1. IMBRUVICA [Suspect]
     Active Substance: IBRUTINIB
     Indication: NON-HODGKIN^S LYMPHOMA
     Dosage: 140 MG, QD
     Route: 048
     Dates: start: 201901

REACTIONS (15)
  - Incorrect dose administered [Unknown]
  - Arthropathy [Unknown]
  - White blood cell count decreased [Unknown]
  - Eczema [Unknown]
  - Herpes zoster [Unknown]
  - Arthralgia [Unknown]
  - Eye disorder [Unknown]
  - Varicella [Unknown]
  - Blood blister [Unknown]
  - Monoclonal gammopathy [Unknown]
  - Candida infection [Unknown]
  - Gastrooesophageal reflux disease [Unknown]
  - Dry mouth [Unknown]
  - Abdominal pain upper [Unknown]
  - Rash [Unknown]

NARRATIVE: CASE EVENT DATE: 201901
